FAERS Safety Report 18375926 (Version 1)
Quarter: 2020Q4

REPORT INFORMATION
  Report Type: Spontaneous
  Country: US (occurrence: US)
  Receive Date: 20201009
  Receipt Date: 20201009
  Transmission Date: 20210114
  Serious: Yes (Hospitalization)
  Sender: FDA-Public Use
  Company Number: None

PATIENT
  Age: 62 Year
  Sex: Female

DRUGS (1)
  1. BOSULIF [Suspect]
     Active Substance: BOSUTINIB MONOHYDRATE
     Indication: CHRONIC MYELOID LEUKAEMIA
     Dosage: ?          OTHER FREQUENCY:4 TABS ONCE DAILY ;?
     Route: 048
     Dates: end: 20200828

REACTIONS (6)
  - Renal disorder [None]
  - Therapy cessation [None]
  - Gastric operation [None]
  - Dyspnoea [None]
  - Cardiac disorder [None]
  - Tracheal operation [None]

NARRATIVE: CASE EVENT DATE: 20200806
